FAERS Safety Report 21038463 (Version 1)
Quarter: 2022Q3

REPORT INFORMATION
  Report Type: Spontaneous
  Country: CA (occurrence: CA)
  Receive Date: 20220704
  Receipt Date: 20220704
  Transmission Date: 20221026
  Serious: Yes (Other)
  Sender: FDA-Public Use
  Company Number: CA-JNJFOC-20220701889

PATIENT
  Age: 36 Year
  Sex: Female
  Weight: 39 kg

DRUGS (2)
  1. REMICADE [Suspect]
     Active Substance: INFLIXIMAB
     Indication: Crohn^s disease
     Route: 041
  2. MERCAPTOPURINE [Concomitant]
     Active Substance: MERCAPTOPURINE

REACTIONS (6)
  - Uveitis [Unknown]
  - Anal fissure [Unknown]
  - Exposure during pregnancy [Unknown]
  - Condition aggravated [Unknown]
  - Intentional product use issue [Unknown]
  - Off label use [Unknown]
